FAERS Safety Report 9090185 (Version 2)
Quarter: 2013Q1

REPORT INFORMATION
  Report Type: Spontaneous
  Country: US (occurrence: US)
  Receive Date: 20130131
  Receipt Date: 20130207
  Transmission Date: 20140127
  Serious: Yes (Other)
  Sender: FDA-Public Use
  Company Number: US-BAXTER-2013BAX003554

PATIENT
  Age: 43 None
  Sex: Female
  Weight: 55 kg

DRUGS (13)
  1. GAMMAGARD LIQUID [Suspect]
     Indication: IDIOPATHIC THROMBOCYTOPENIC PURPURA
     Route: 042
     Dates: start: 20130108, end: 20130108
  2. GAMMAGARD LIQUID [Suspect]
     Route: 042
     Dates: start: 20130109, end: 20130109
  3. GAMMAGARD LIQUID [Suspect]
     Route: 042
     Dates: start: 20130110, end: 20130110
  4. GAMMAGARD LIQUID [Suspect]
     Route: 042
     Dates: start: 20130111, end: 20130111
  5. GAMMAGARD LIQUID [Suspect]
     Route: 042
     Dates: start: 20130114, end: 20130114
  6. ADDERALL [Concomitant]
     Indication: PRODUCT USED FOR UNKNOWN INDICATION
     Route: 048
  7. SIMVASTATIN [Concomitant]
     Indication: PRODUCT USED FOR UNKNOWN INDICATION
     Route: 048
  8. CYMBALTA [Concomitant]
     Indication: PRODUCT USED FOR UNKNOWN INDICATION
     Route: 048
  9. KLOR CON [Concomitant]
     Indication: PRODUCT USED FOR UNKNOWN INDICATION
     Route: 048
  10. PREDNISONE [Concomitant]
     Indication: PRODUCT USED FOR UNKNOWN INDICATION
     Route: 048
  11. NEXIUM [Concomitant]
     Indication: PRODUCT USED FOR UNKNOWN INDICATION
     Route: 048
  12. XANAX [Concomitant]
     Indication: PRODUCT USED FOR UNKNOWN INDICATION
     Route: 048
  13. OXYCODONE HYDROCHLORIDE [Concomitant]
     Indication: PRODUCT USED FOR UNKNOWN INDICATION
     Route: 048

REACTIONS (7)
  - Fungal infection [Recovered/Resolved]
  - Urinary tract infection [Not Recovered/Not Resolved]
  - Upper respiratory tract infection [Not Recovered/Not Resolved]
  - Candida infection [Recovering/Resolving]
  - Sinusitis [Unknown]
  - Headache [Not Recovered/Not Resolved]
  - Epistaxis [Recovering/Resolving]
